FAERS Safety Report 16067476 (Version 1)
Quarter: 2019Q1

REPORT INFORMATION
  Report Type: Report from Study
  Country: None (occurrence: CA)
  Receive Date: 20190313
  Receipt Date: 20190313
  Transmission Date: 20190418
  Serious: Yes (Other)
  Sender: FDA-Public Use
  Company Number: CA-ABBVIE-19K-028-2698411-00

PATIENT
  Sex: Male

DRUGS (1)
  1. HUMIRA [Suspect]
     Active Substance: ADALIMUMAB
     Indication: PSORIATIC ARTHROPATHY
     Route: 058
     Dates: start: 20130611

REACTIONS (13)
  - Musculoskeletal stiffness [Unknown]
  - Central nervous system lesion [Unknown]
  - Sarcoidosis [Unknown]
  - Brain abscess [Unknown]
  - Cerebral thrombosis [Unknown]
  - Abscess [Unknown]
  - Gastrooesophageal reflux disease [Unknown]
  - Nausea [Unknown]
  - Headache [Unknown]
  - Vomiting [Unknown]
  - Lethargy [Unknown]
  - Immunosuppression [Unknown]
  - Streptococcal infection [Unknown]

NARRATIVE: CASE EVENT DATE: 2015
